FAERS Safety Report 11518211 (Version 1)
Quarter: 2015Q3

REPORT INFORMATION
  Report Type: Report from Study
  Country: US (occurrence: US)
  Receive Date: 20150917
  Receipt Date: 20150917
  Transmission Date: 20151125
  Serious: Yes (Hospitalization, Other)
  Sender: FDA-Public Use
  Company Number: US-ABBVIE-15K-163-1462380-00

PATIENT
  Sex: Female
  Weight: 62.65 kg

DRUGS (2)
  1. HUMIRA [Suspect]
     Active Substance: ADALIMUMAB
     Indication: CROHN^S DISEASE
     Route: 065
     Dates: start: 20150413, end: 20150601
  2. PREDNISONE. [Concomitant]
     Active Substance: PREDNISONE
     Indication: CROHN^S DISEASE
     Dates: start: 201508

REACTIONS (10)
  - Weight decreased [Recovering/Resolving]
  - Impaired healing [Not Recovered/Not Resolved]
  - Sepsis [Recovered/Resolved]
  - Immunodeficiency [Recovering/Resolving]
  - Enterococcal infection [Recovered/Resolved]
  - Intestinal perforation [Unknown]
  - Hypophagia [Unknown]
  - Post procedural pulmonary embolism [Recovering/Resolving]
  - Abdominal adhesions [Recovering/Resolving]
  - Clostridium difficile infection [Recovered/Resolved]

NARRATIVE: CASE EVENT DATE: 2015
